APPROVED DRUG PRODUCT: BUPRENORPHINE HYDROCHLORIDE
Active Ingredient: BUPRENORPHINE HYDROCHLORIDE
Strength: EQ 2MG BASE
Dosage Form/Route: TABLET;SUBLINGUAL
Application: A090819 | Product #001 | TE Code: AB
Applicant: ACTAVIS ELIZABETH LLC
Approved: Feb 19, 2015 | RLD: No | RS: No | Type: RX